FAERS Safety Report 10134699 (Version 1)
Quarter: 2014Q2

REPORT INFORMATION
  Report Type: Spontaneous
  Country: US (occurrence: US)
  Receive Date: 20140428
  Receipt Date: 20140428
  Transmission Date: 20141212
  Serious: No
  Sender: FDA-Public Use
  Company Number: US-PFIZER INC-2014117162

PATIENT
  Sex: Male

DRUGS (1)
  1. GABAPENTIN [Suspect]
     Dosage: 50 MG, 3X/DAY
     Route: 048

REACTIONS (2)
  - Limb discomfort [Unknown]
  - Poor quality sleep [Unknown]
